FAERS Safety Report 6330303-5 (Version None)
Quarter: 2009Q3

REPORT INFORMATION
  Report Type: 
  Country: None (occurrence: None)
  Receive Date: 20090827
  Receipt Date: 20090722
  Transmission Date: 20100115
  Serious: No
  Sender: FDA-Public Use
  Company Number: US-KINGPHARMUSA00001-K200900868

PATIENT
  Sex: Female
  Weight: 58.957 kg

DRUGS (2)
  1. FLECTOR [Suspect]
     Indication: INFLAMMATION
     Dosage: PATCH
     Route: 061
     Dates: start: 20090401, end: 20090501
  2. FLECTOR [Suspect]
     Indication: ABDOMINAL PAIN

REACTIONS (4)
  - DIZZINESS [None]
  - FEELING ABNORMAL [None]
  - MALAISE [None]
  - NAUSEA [None]
